FAERS Safety Report 13473138 (Version 2)
Quarter: 2017Q2

REPORT INFORMATION
  Report Type: Spontaneous
  Country: DE (occurrence: DE)
  Receive Date: 20170424
  Receipt Date: 20170517
  Transmission Date: 20170830
  Serious: Yes (Other)
  Sender: FDA-Public Use
  Company Number: DE-ACTELION-A-CH2017-152424

PATIENT
  Age: 67 Year
  Sex: Female
  Weight: 79 kg

DRUGS (9)
  1. AQUAPHOR [Concomitant]
     Active Substance: PETROLATUM
     Indication: CHRONIC KIDNEY DISEASE
     Dosage: 10 MG, OD
     Route: 048
     Dates: start: 20170301, end: 20170406
  2. L-THYROXIN [Concomitant]
     Active Substance: LEVOTHYROXINE SODIUM
     Dosage: UNK UNK, OD
  3. VALSACOR [Concomitant]
     Active Substance: VALSARTAN
     Dosage: 20 MG, QD
  4. PANTOZOL [Concomitant]
     Active Substance: PANTOPRAZOLE SODIUM
     Dosage: 40 MG, OD
  5. ALDACTONE [Concomitant]
     Active Substance: SPIRONOLACTONE
     Dosage: 25 MG, OD
  6. CLEXANE [Concomitant]
     Active Substance: ENOXAPARIN SODIUM
  7. OPSUMIT [Suspect]
     Active Substance: MACITENTAN
     Indication: PULMONARY HYPERTENSION
     Dosage: 10 MG, OD
     Route: 048
     Dates: start: 20170301, end: 20170406
  8. MARCUMAR [Concomitant]
     Active Substance: PHENPROCOUMON
     Dosage: 3 MG, PRN
  9. TOREM [Concomitant]
     Active Substance: TORSEMIDE
     Dosage: 15 MG, QD

REACTIONS (6)
  - Acute kidney injury [Unknown]
  - Dyspnoea [Unknown]
  - Aspartate aminotransferase increased [Unknown]
  - Blood creatine increased [Unknown]
  - Liver function test increased [Unknown]
  - Blood urea increased [Unknown]

NARRATIVE: CASE EVENT DATE: 20170403
